FAERS Safety Report 6312161 (Version 5)
Quarter: 2018Q4

REPORT INFORMATION
  Report Type: Spontaneous
  Country: JP (occurrence: JP)
  Receive Date: 20070515
  Receipt Date: 20181022
  Transmission Date: 20190205
  Serious: Yes (Hospitalization)
  Sender: FDA-Public Use
  Company Number: PHBS2007JP07963

PATIENT
  Age: 70 Year
  Sex: Male
  Weight: 51 kg

DRUGS (12)
  1. SYMMETREL [Concomitant]
     Active Substance: AMANTADINE HYDROCHLORIDE
     Indication: PRODUCT USED FOR UNKNOWN INDICATION
     Dosage: 150 MG, QD
     Route: 048
     Dates: start: 200701, end: 20070422
  2. HYPEN [ETODOLAC] [Suspect]
     Active Substance: ETODOLAC
     Indication: BACK PAIN
     Dosage: 400 MG, QD
     Route: 048
     Dates: start: 20070314, end: 20070422
  3. COMTAN [Suspect]
     Active Substance: ENTACAPONE
     Indication: PARKINSON^S DISEASE
     Dosage: 100 MG, QID
     Route: 048
     Dates: start: 20070419, end: 20070422
  4. MARZULENE S [Concomitant]
     Active Substance: GLUTAMINE\SODIUM GUALENATE
     Indication: PRODUCT USED FOR UNKNOWN INDICATION
     Dosage: 1.34 G, QD
     Route: 048
     Dates: start: 20070314, end: 20070422
  5. METHYCOBAL [Concomitant]
     Active Substance: METHYLCOBALAMIN
     Indication: PRODUCT USED FOR UNKNOWN INDICATION
     Dosage: 1.5 MG, QD
     Route: 048
     Dates: start: 20070331, end: 20070422
  6. CABASER [Concomitant]
     Active Substance: CABERGOLINE
     Indication: PRODUCT USED FOR UNKNOWN INDICATION
     Dosage: 5 MG, QD
     Route: 048
     Dates: start: 1998, end: 20070422
  7. HARNAL [Concomitant]
     Active Substance: TAMSULOSIN HYDROCHLORIDE
     Indication: PRODUCT USED FOR UNKNOWN INDICATION
     Dosage: 0.1 MG, QD
     Route: 048
     Dates: start: 200701, end: 20070422
  8. NEO DOPASTON [Concomitant]
     Indication: PRODUCT USED FOR UNKNOWN INDICATION
     Dosage: 500 MG, QD
     Route: 048
     Dates: start: 1998, end: 20070422
  9. LENDORMIN [Concomitant]
     Active Substance: BROTIZOLAM
     Indication: PRODUCT USED FOR UNKNOWN INDICATION
     Dosage: UNK
     Route: 048
     Dates: start: 20070228, end: 20070422
  10. MUCODYNE [Concomitant]
     Active Substance: CARBOCYSTEINE
     Indication: PRODUCT USED FOR UNKNOWN INDICATION
     Dosage: 1500 MG, QD
     Route: 048
     Dates: start: 20070201, end: 20070422
  11. EXCEGRAN [Concomitant]
     Active Substance: ZONISAMIDE
     Indication: PRODUCT USED FOR UNKNOWN INDICATION
     Dosage: 200 MG, QD
     Route: 048
     Dates: start: 20070130, end: 20070422
  12. SELBEX [Concomitant]
     Active Substance: TEPRENONE
     Indication: PRODUCT USED FOR UNKNOWN INDICATION
     Dosage: 1.5 G, QD
     Route: 048
     Dates: start: 20070129, end: 20070422

REACTIONS (13)
  - Oesophagitis haemorrhagic [Recovered/Resolved]
  - Pneumonia aspiration [Recovered/Resolved]
  - Disseminated intravascular coagulation [Recovered/Resolved]
  - Abdominal discomfort [Recovered/Resolved]
  - Gastrooesophageal reflux disease [Recovered/Resolved]
  - Sepsis [Recovered/Resolved]
  - Pyrexia [Recovering/Resolving]
  - Neuroleptic malignant syndrome [Recovered/Resolved]
  - Gastritis erosive [Recovered/Resolved]
  - Fungal infection [Recovered/Resolved]
  - White blood cell count decreased [Recovered/Resolved]
  - Gastritis haemorrhagic [Recovered/Resolved]
  - Haematemesis [Recovering/Resolving]

NARRATIVE: CASE EVENT DATE: 20070422
